FAERS Safety Report 24947536 (Version 1)
Quarter: 2025Q1

REPORT INFORMATION
  Report Type: Spontaneous
  Country: US (occurrence: US)
  Receive Date: 20250210
  Receipt Date: 20250210
  Transmission Date: 20250409
  Serious: No
  Sender: BAUSCH AND LOMB
  Company Number: US-BAUSCHBL-2025BNL001727

PATIENT
  Age: 81 Year
  Sex: Female

DRUGS (1)
  1. VYZULTA [Suspect]
     Active Substance: LATANOPROSTENE BUNOD
     Indication: Glaucoma
     Dosage: USED ONE DROP INTO THE RIGHT EYE
     Route: 047
     Dates: start: 202501, end: 202501

REACTIONS (4)
  - Pain [Recovered/Resolved]
  - Ill-defined disorder [Recovered/Resolved]
  - Ocular hyperaemia [Recovered/Resolved]
  - Erythema of eyelid [Recovered/Resolved]

NARRATIVE: CASE EVENT DATE: 20250101
